FAERS Safety Report 18477119 (Version 20)
Quarter: 2021Q1

REPORT INFORMATION
  Report Type: Report from Study
  Country: IE (occurrence: IE)
  Receive Date: 20201107
  Receipt Date: 20210331
  Transmission Date: 20210419
  Serious: Yes (Death, Hospitalization, Other)
  Sender: FDA-Public Use
  Company Number: IE-SHIRE-IE202019393

PATIENT
  Age: 62 Year
  Sex: Female

DRUGS (35)
  1. ZIMOVANE [Concomitant]
     Active Substance: ZOPICLONE
     Dosage: 7.5 MILLIGRAM, NIGHT
     Route: 050
  2. NEXIUM I.V. [Concomitant]
     Active Substance: ESOMEPRAZOLE SODIUM
     Dosage: 40 MILLIGRAM, TABLETS
     Route: 065
  3. HUMAN NORMAL IMMUNOGLOBULIN; LIQUID [Suspect]
     Active Substance: HUMAN IMMUNOGLOBULIN G
     Dosage: 20 GRAM, 1/WEEK
     Route: 042
     Dates: start: 20200526
  4. HUMAN NORMAL IMMUNOGLOBULIN; LIQUID [Suspect]
     Active Substance: HUMAN IMMUNOGLOBULIN G
     Dosage: 20 GRAM, 1/WEEK
     Route: 042
     Dates: start: 20200526, end: 20210325
  5. SLOW K [Concomitant]
     Active Substance: POTASSIUM CHLORIDE
     Dosage: 2 APPLICATION, QD
     Route: 050
  6. PALEXIA [Concomitant]
     Active Substance: TAPENTADOL HYDROCHLORIDE
     Dosage: 50 MILLIGRAM, TABLETS
     Route: 065
  7. VIBRAMYCINE [Concomitant]
     Active Substance: DOXYCYCLINE HYDROCHLORIDE
     Indication: PROPHYLAXIS
     Route: 065
  8. XANAX [Concomitant]
     Active Substance: ALPRAZOLAM
     Dosage: 0.5 MILLIGRAM, BID
     Route: 050
  9. COMBIVENT [Concomitant]
     Active Substance: ALBUTEROL SULFATE\IPRATROPIUM BROMIDE
     Dosage: 2.5 MILLIGRAM, NEBULE
     Route: 065
  10. TRAMADOL. [Concomitant]
     Active Substance: TRAMADOL
     Dosage: 100 MILLIGRAM, BID
     Route: 065
  11. CALCICHEW D3 [Concomitant]
     Active Substance: CALCIUM\CHOLECALCIFEROL
     Dosage: 1 MILLIGRAM, BID
     Route: 065
  12. CARDURA [Concomitant]
     Active Substance: DOXAZOSIN MESYLATE
     Dosage: 4 MILLIGRAM, BID
     Route: 050
  13. PROCORALAN [Concomitant]
     Active Substance: IVABRADINE
     Dosage: 5 MILLIGRAM, QD
     Route: 050
  14. COZAAR [Concomitant]
     Active Substance: LOSARTAN POTASSIUM
     Dosage: 100 MILLIGRAM, TABLETS
     Route: 065
  15. FENTANYL. [Concomitant]
     Active Substance: FENTANYL
     Dosage: 50 MICROGRAM, PATCH
     Route: 065
  16. PIRITON [Concomitant]
     Active Substance: CHLORPHENIRAMINE MALEATE
     Dosage: 4 MICROGRAM, TABLETS
     Route: 065
  17. ZIRTEK [Concomitant]
     Active Substance: CETIRIZINE HYDROCHLORIDE
     Dosage: 10 MILLIGRAM, TABLETS
     Route: 065
  18. CARDURA XL [Concomitant]
     Active Substance: DOXAZOSIN MESYLATE
     Dosage: 8 MILLIGRAM, TABLETS
     Route: 065
  19. SEVREDOL [Concomitant]
     Active Substance: MORPHINE
     Dosage: 20 MILLIGRAM, QID
     Route: 065
  20. HUMAN NORMAL IMMUNOGLOBULIN; LIQUID [Suspect]
     Active Substance: HUMAN IMMUNOGLOBULIN G
     Dosage: 40 GRAM
     Route: 042
     Dates: start: 20200616
  21. SYMBICORT [Concomitant]
     Active Substance: BUDESONIDE\FORMOTEROL FUMARATE DIHYDRATE
     Dosage: 100 MILLIGRAM, INHALER
     Route: 065
  22. GENTAMICIN. [Concomitant]
     Active Substance: GENTAMICIN
     Dosage: UNK
     Route: 065
  23. TYLEX [CODEINE PHOSPHATE;PARACETAMOL] [Concomitant]
     Indication: PAIN
     Route: 065
  24. ZYDOL [NIMESULIDE] [Concomitant]
     Dosage: 50 MILLIGRAM, QD
     Route: 050
  25. AMLODIPINE [Concomitant]
     Active Substance: AMLODIPINE BESYLATE
     Dosage: 5 MILLIGRAM, TABLETS
     Route: 065
  26. DELTACORTRIL [PREDNISOLONE ACETATE] [Concomitant]
     Dosage: 10 MILLIGRAM, TABLETS
     Route: 065
  27. LYRICA [Concomitant]
     Active Substance: PREGABALIN
     Dosage: 350 MILLIGRAM, TABLETS
     Route: 065
  28. STELARA [Concomitant]
     Active Substance: USTEKINUMAB
     Dosage: UNK
     Route: 065
  29. HUMAN NORMAL IMMUNOGLOBULIN; LIQUID [Suspect]
     Active Substance: HUMAN IMMUNOGLOBULIN G
     Indication: HYPOGAMMAGLOBULINAEMIA
     Dosage: 20 GRAM, 1/WEEK
     Route: 042
     Dates: start: 20200520
  30. HUMAN NORMAL IMMUNOGLOBULIN; LIQUID [Suspect]
     Active Substance: HUMAN IMMUNOGLOBULIN G
     Dosage: 20 GRAM, 1/WEEK
     Route: 042
     Dates: start: 20200526
  31. CALCICHEW [Concomitant]
     Active Substance: CALCIUM CARBONATE
     Dosage: 500 MILLIGRAM, QD
     Route: 050
  32. ATORVASTATIN [Concomitant]
     Active Substance: ATORVASTATIN
     Dosage: 20 MILLIGRAM, TABLETS
     Route: 065
  33. DOXYCYCLINE. [Concomitant]
     Active Substance: DOXYCYCLINE
     Dosage: 100 MILLIGRAM, TABLETS
     Route: 065
  34. FOSAMAX [Concomitant]
     Active Substance: ALENDRONATE SODIUM
     Dosage: 70 MILLIGRAM, TABLETS
     Route: 065
  35. SINGULAIR [Concomitant]
     Active Substance: MONTELUKAST SODIUM
     Dosage: 10 MILLIGRAM, TABLETS
     Route: 065

REACTIONS (41)
  - Hypotension [Not Recovered/Not Resolved]
  - Fall [Recovering/Resolving]
  - Infection [Recovering/Resolving]
  - Product preparation issue [Recovered/Resolved]
  - Renal failure [Unknown]
  - Abdominal pain upper [Unknown]
  - Groin pain [Unknown]
  - Vomiting [Unknown]
  - Diarrhoea [Unknown]
  - Kidney enlargement [Recovering/Resolving]
  - C-reactive protein increased [Recovering/Resolving]
  - Scar [Recovering/Resolving]
  - Renal pain [Unknown]
  - Incorrect drug administration rate [Recovered/Resolved]
  - Pelvic fracture [Not Recovered/Not Resolved]
  - Kidney infection [Unknown]
  - Infusion related reaction [Recovering/Resolving]
  - Constipation [Not Recovered/Not Resolved]
  - Pain [Not Recovered/Not Resolved]
  - Blood calcium increased [Not Recovered/Not Resolved]
  - Poor venous access [Recovering/Resolving]
  - Discomfort [Not Recovered/Not Resolved]
  - Blood calcium abnormal [Recovering/Resolving]
  - Decreased appetite [Unknown]
  - Dyspnoea [Recovering/Resolving]
  - Nausea [Recovering/Resolving]
  - Haemorrhage [Not Recovered/Not Resolved]
  - Urinary bladder haemorrhage [Recovering/Resolving]
  - Haemoglobin decreased [Unknown]
  - Contusion [Recovering/Resolving]
  - Device issue [Recovered/Resolved]
  - Renal disorder [Unknown]
  - Hypogammaglobulinaemia [Not Recovered/Not Resolved]
  - Poor quality sleep [Not Recovered/Not Resolved]
  - Adverse event [Not Recovered/Not Resolved]
  - Infusion site exfoliation [Unknown]
  - SARS-CoV-2 test positive [Fatal]
  - Blood pressure increased [Unknown]
  - Lower respiratory tract infection [Recovering/Resolving]
  - Urinary tract infection [Unknown]
  - Infusion site extravasation [Unknown]

NARRATIVE: CASE EVENT DATE: 20200728
